FAERS Safety Report 13255844 (Version 4)
Quarter: 2017Q2

REPORT INFORMATION
  Report Type: Spontaneous
  Country: US (occurrence: US)
  Receive Date: 20170221
  Receipt Date: 20170420
  Transmission Date: 20170830
  Serious: Yes (Death, Hospitalization, Other)
  Sender: FDA-Public Use
  Company Number: US-JNJFOC-20170217064

PATIENT
  Age: 68 Year
  Sex: Male

DRUGS (10)
  1. FLUCONAZOLE. [Concomitant]
     Active Substance: FLUCONAZOLE
     Dosage: 200 (UNITS NOT REPORTED), QD
  2. ALLOPURINOL. [Concomitant]
     Active Substance: ALLOPURINOL
  3. MIDODRINE [Concomitant]
     Active Substance: MIDODRINE
  4. VALCYTE [Concomitant]
     Active Substance: VALGANCICLOVIR HYDROCHLORIDE
  5. IMBRUVICA [Suspect]
     Active Substance: IBRUTINIB
     Indication: CHRONIC LYMPHOCYTIC LEUKAEMIA
     Route: 048
     Dates: start: 20161104, end: 201702
  6. ZOFRAN [Concomitant]
     Active Substance: ONDANSETRON HYDROCHLORIDE
  7. MSIR [Concomitant]
     Active Substance: MORPHINE SULFATE
     Dosage: 15 MG, EVERY 4 HOURS
  8. ZOLOFT [Concomitant]
     Active Substance: SERTRALINE HYDROCHLORIDE
  9. LEVAQUIN [Concomitant]
     Active Substance: LEVOFLOXACIN
  10. ROMERON [Concomitant]

REACTIONS (6)
  - Cytomegalovirus viraemia [Recovered/Resolved]
  - Splenomegaly [Fatal]
  - Pleural effusion [Not Recovered/Not Resolved]
  - Disease progression [Fatal]
  - Pancytopenia [Fatal]
  - Hypotension [Not Recovered/Not Resolved]

NARRATIVE: CASE EVENT DATE: 20170102
